FAERS Safety Report 4380480-0 (Version None)
Quarter: 2004Q2

REPORT INFORMATION
  Report Type: 
  Country: None (occurrence: None)
  Receive Date: 20040618
  Receipt Date: 20040609
  Transmission Date: 20050107
  Serious: Yes (Hospitalization)
  Sender: FDA-Public Use
  Company Number: GB-JNJFOC-20040602165

PATIENT
  Sex: Male

DRUGS (9)
  1. REMICADE [Suspect]
     Indication: RHEUMATOID ARTHRITIS
     Route: 042
  2. PREDNISOLONE [Concomitant]
     Route: 065
  3. METHOTREXATE [Concomitant]
     Route: 065
  4. FOLIC ACID [Concomitant]
     Route: 065
  5. CO-PROXAMOL [Concomitant]
     Route: 065
  6. CO-PROXAMOL [Concomitant]
     Route: 065
  7. CALCICHEW [Concomitant]
     Route: 065
  8. RANITIDINE [Concomitant]
     Route: 065
  9. VENLAFAXINE [Concomitant]
     Route: 065

REACTIONS (5)
  - BODY TEMPERATURE INCREASED [None]
  - CHILLS [None]
  - INFUSION RELATED REACTION [None]
  - TYPE IV HYPERSENSITIVITY REACTION [None]
  - VOMITING [None]
